FAERS Safety Report 12305341 (Version 1)
Quarter: 2016Q2

REPORT INFORMATION
  Report Type: Spontaneous
  Country: DE (occurrence: DE)
  Receive Date: 20160426
  Receipt Date: 20160426
  Transmission Date: 20160815
  Serious: Yes (Disabling, Other)
  Sender: FDA-Public Use
  Company Number: DE-GLAXOSMITHKLINE-DE2016GSK057673

PATIENT
  Sex: Female
  Weight: 85 kg

DRUGS (8)
  1. CEFERRO [Concomitant]
  2. REQUIP [Suspect]
     Active Substance: ROPINIROLE HYDROCHLORIDE
     Indication: RESTLESS LEGS SYNDROME
     Dosage: UNK
     Route: 048
     Dates: start: 200502, end: 200506
  3. SIFROL [Suspect]
     Active Substance: PRAMIPEXOLE
     Indication: PRODUCT USED FOR UNKNOWN INDICATION
     Dosage: UNK
     Route: 048
     Dates: start: 200507, end: 200603
  4. MADOPAR LT [Suspect]
     Active Substance: BENSERAZIDE HYDROCHLORIDE\LEVODOPA
     Indication: RESTLESS LEGS SYNDROME
     Dosage: UNK
     Route: 048
     Dates: start: 200308, end: 2005
  5. VALORON DROPS [Suspect]
     Active Substance: TILIDINE HYDROCHLORIDE
     Indication: RESTLESS LEGS SYNDROME
     Dosage: 15 DF, BID (DROPS)
     Route: 048
     Dates: start: 2004
  6. TILIDIN [Suspect]
     Active Substance: NALOXONE HYDROCHLORIDE\TILIDINE HYDROCHLORIDE
     Indication: RESTLESS LEGS SYNDROME
     Dosage: 15 DF, BID
     Route: 048
     Dates: start: 2004, end: 2005
  7. RESTEX RETARD [Suspect]
     Active Substance: BENSERAZIDE\LEVODOPA
     Indication: RESTLESS LEGS SYNDROME
     Dosage: 1 UNK, 1D
     Route: 048
     Dates: start: 200308, end: 2004
  8. MAGNEROT CLASSIC [Concomitant]

REACTIONS (13)
  - Paraesthesia [Unknown]
  - Intercostal neuralgia [Not Recovered/Not Resolved]
  - Pain in extremity [Recovered/Resolved]
  - Restless legs syndrome [Unknown]
  - Respiration abnormal [Not Recovered/Not Resolved]
  - Neck pain [Not Recovered/Not Resolved]
  - Anxiety [Unknown]
  - Polyneuropathy [Not Recovered/Not Resolved]
  - Condition aggravated [Unknown]
  - Rib deformity [Not Recovered/Not Resolved]
  - Muscle spasms [Not Recovered/Not Resolved]
  - Restlessness [Unknown]
  - Muscular weakness [Recovered/Resolved]

NARRATIVE: CASE EVENT DATE: 2005
